FAERS Safety Report 8773357 (Version 1)
Quarter: 2012Q4

REPORT INFORMATION
  Report Type: 
  Country: US (occurrence: US)
  Receive Date: 20120907
  Receipt Date: 20120907
  Transmission Date: 20130627
  Serious: No
  Sender: FDA-Public Use
  Company Number: US-BAYER-2012-090594

PATIENT
  Age: 56 Year
  Sex: Female
  Weight: 54 kg

DRUGS (16)
  1. BETASERON [Suspect]
     Dosage: 0.3 mg, UNK
     Route: 058
  2. FORTEO [Concomitant]
     Dosage: 600/2.4
     Route: 058
  3. DETROL LA [Concomitant]
     Dosage: 2 mg
     Route: 048
  4. TYLENOL WITH CODEINE [Concomitant]
     Route: 048
  5. DICLOFENAC [Concomitant]
     Dosage: 50 mg EC
     Route: 048
  6. PREDNISONE [Concomitant]
     Dosage: 1 mg
     Route: 048
  7. NEURONTIN [Concomitant]
     Dosage: 300 mg
     Route: 048
  8. FIORINAL WITH CODEINE [Concomitant]
     Dosage: 30 mg
     Route: 048
  9. OMEPRAZOLE [Concomitant]
     Dosage: 20 mg
     Route: 048
  10. WELLBUTRIN [Concomitant]
     Dosage: 75 mg
     Route: 048
  11. VITAMIN E [Concomitant]
     Dosage: 1000 unit
     Route: 048
  12. VITAMIN B [Concomitant]
     Route: 048
  13. VITAMIN D3 [Concomitant]
     Dosage: 1000 unit
     Route: 048
  14. AMINO ACID [Concomitant]
     Route: 048
  15. FISH OIL [Concomitant]
     Route: 048
  16. CALCIUM [CALCIUM] [Concomitant]
     Dosage: 600
     Route: 048

REACTIONS (2)
  - Injection site reaction [None]
  - Injection site urticaria [None]
